FAERS Safety Report 10301214 (Version 1)
Quarter: 2014Q3

REPORT INFORMATION
  Report Type: Spontaneous
  Country: US (occurrence: None)
  Receive Date: 20140709
  Receipt Date: 20140709
  Transmission Date: 20150326
  Serious: Yes (Other)
  Sender: FDA-Public Use
  Company Number: None

PATIENT
  Age: 56 Year
  Sex: Female
  Weight: 88.45 kg

DRUGS (14)
  1. BENZOTROPINE [Suspect]
     Active Substance: BENZTROPINE
     Indication: TREMOR
     Route: 048
     Dates: start: 20140620, end: 20140624
  2. CALCIUM/ MAGNESIUM [Concomitant]
  3. VENTOLIN [Concomitant]
     Active Substance: ALBUTEROL SULFATE
  4. BENZTROPINE [Concomitant]
     Active Substance: BENZTROPINE
  5. ZOLOFT [Concomitant]
     Active Substance: SERTRALINE HYDROCHLORIDE
  6. KELP WITH FOLIC ACID [Concomitant]
  7. QUINAPRIL [Concomitant]
     Active Substance: QUINAPRIL\QUINAPRIL HYDROCHLORIDE
  8. BRONKAID [Concomitant]
     Active Substance: EPHEDRINE SULFATE\GUAIFENESIN
  9. TRAMADOL [Concomitant]
     Active Substance: TRAMADOL
  10. VITAMIN B COMPLEX [Concomitant]
     Active Substance: CYANOCOBALAMIN\DEXPANTHENOL\NIACINAMIDE\PYRIDOXINE HYDROCHLORIDE\RIBOFLAVIN 5^-PHOSPHATE SODIUM\THIAMINE HYDROCHLORIDE\VITAMIN B COMPLEX
  11. LATUDA [Concomitant]
     Active Substance: LURASIDONE HYDROCHLORIDE
  12. TRAZODONE [Concomitant]
     Active Substance: TRAZODONE HYDROCHLORIDE
  13. PROBIOTIC [Concomitant]
     Active Substance: PROBIOTICS NOS
  14. GLUCOSIMINE [Concomitant]

REACTIONS (9)
  - Muscular weakness [None]
  - Dyskinesia [None]
  - Dizziness [None]
  - Dysstasia [None]
  - Impaired work ability [None]
  - Hallucination, visual [None]
  - Tremor [None]
  - Activities of daily living impaired [None]
  - Paraesthesia [None]

NARRATIVE: CASE EVENT DATE: 20140622
